FAERS Safety Report 10469529 (Version 1)
Quarter: 2014Q3

REPORT INFORMATION
  Report Type: Spontaneous
  Country: US (occurrence: None)
  Receive Date: 20140922
  Receipt Date: 20140922
  Transmission Date: 20150326
  Serious: No
  Sender: FDA-Public Use
  Company Number: None

PATIENT
  Age: 67 Year
  Sex: Female

DRUGS (15)
  1. ALLOPURINOL. [Concomitant]
     Active Substance: ALLOPURINOL
  2. ZINC [Concomitant]
     Active Substance: ZINC\ZINC CHLORIDE
  3. AFINITOR [Suspect]
     Active Substance: EVEROLIMUS
     Indication: BREAST CANCER
     Route: 048
     Dates: start: 20140617
  4. TRAMADOL [Concomitant]
     Active Substance: TRAMADOL
  5. CYCLOBENZAPA [Concomitant]
  6. METOPROLOL [Concomitant]
     Active Substance: METOPROLOL
  7. AROMASIN [Concomitant]
     Active Substance: EXEMESTANE
  8. CITALOPRAM [Concomitant]
     Active Substance: CITALOPRAM HYDROBROMIDE
  9. CALCITONIN [Concomitant]
     Active Substance: CALCITONIN
  10. TRIAMTERENE. [Concomitant]
     Active Substance: TRIAMTERENE
  11. SIMVASTATIN. [Concomitant]
     Active Substance: SIMVASTATIN
  12. ARINITOR [Concomitant]
  13. CYCLOBENZAPR [Concomitant]
  14. IBUPROFEN. [Concomitant]
     Active Substance: IBUPROFEN
  15. MORPHINE [Concomitant]
     Active Substance: MORPHINE

REACTIONS (1)
  - Hepatic enzyme increased [None]

NARRATIVE: CASE EVENT DATE: 201408
